FAERS Safety Report 6321771-3 (Version None)
Quarter: 2009Q3

REPORT INFORMATION
  Report Type: 
  Country: None (occurrence: None)
  Receive Date: 20090819
  Receipt Date: 20090806
  Transmission Date: 20100115
  Serious: No
  Sender: FDA-Public Use
  Company Number: 1000007941

PATIENT
  Age: 80 Year
  Sex: Female
  Weight: 54 kg

DRUGS (4)
  1. MEMANTINE HCL [Suspect]
     Indication: DEMENTIA
     Dosage: 10 MG (10 MG, 1 IN 1 D), ORAL
     Route: 048
     Dates: start: 20090605
  2. CONCOR (TABLETS) [Concomitant]
  3. ARICEPT [Concomitant]
  4. ASTRIX (TABLETS) [Concomitant]

REACTIONS (4)
  - DISORIENTATION [None]
  - HEART RATE DECREASED [None]
  - HEART RATE IRREGULAR [None]
  - THINKING ABNORMAL [None]
